FAERS Safety Report 21368792 (Version 1)
Quarter: 2022Q3

REPORT INFORMATION
  Report Type: Spontaneous
  Country: RU (occurrence: None)
  Receive Date: 20220923
  Receipt Date: 20220923
  Transmission Date: 20221027
  Serious: Yes (Other)
  Sender: FDA-Public Use
  Company Number: RU-ROCHE-3183449

PATIENT
  Age: 72 Year
  Sex: Male

DRUGS (10)
  1. RITUXIMAB [Suspect]
     Active Substance: RITUXIMAB
     Indication: Follicular lymphoma
     Route: 041
     Dates: start: 20210211
  2. RITUXIMAB [Suspect]
     Active Substance: RITUXIMAB
     Route: 041
     Dates: start: 20210414
  3. RITUXIMAB [Suspect]
     Active Substance: RITUXIMAB
     Indication: Follicular lymphoma
     Dosage: COURSE 3: SINCE 23/MAR/2021
     Route: 058
     Dates: start: 20210302
  4. OBINUTUZUMAB [Suspect]
     Active Substance: OBINUTUZUMAB
     Indication: Follicular lymphoma
     Dosage: /JAN/2022 TO AUG/2022 MAINTENANCE DOSE
     Route: 065
  5. CYCLOPHOSPHAMIDE [Suspect]
     Active Substance: CYCLOPHOSPHAMIDE
     Indication: Follicular lymphoma
     Dosage: SINCE 02/MAR/2021-COURSE 2, SINCE 23/MAR/2021-COURSE 3
     Route: 042
     Dates: start: 20210211
  6. DOXORUBICIN [Suspect]
     Active Substance: DOXORUBICIN
     Indication: Follicular lymphoma
     Dosage: SINCE 02/MAR/2021-COURSE 2, SINCE 23/MAR/2021-COURSE 3
     Route: 065
     Dates: start: 20210211
  7. VINCRISTINE [Suspect]
     Active Substance: VINCRISTINE
     Indication: Follicular lymphoma
     Dosage: SINCE 02/MAR/2021-COURSE 2, SINCE 23/MAR/2021-COURSE 3
     Route: 065
     Dates: start: 20210211
  8. PREDNISOLONE [Suspect]
     Active Substance: PREDNISOLONE
     Indication: Follicular lymphoma
     Dosage: SINCE 02/MAR/2021-COURSE 2, SINCE 23/MAR/2021-COURSE 3
     Route: 065
     Dates: start: 20210211
  9. BENDAMUSTINE [Suspect]
     Active Substance: BENDAMUSTINE
     Indication: Follicular lymphoma
     Dosage: COURSE 2 15/MAY/2021
     Route: 065
     Dates: start: 20210414
  10. CYTARABINE [Suspect]
     Active Substance: CYTARABINE
     Indication: Follicular lymphoma
     Dosage: COURSE 2 15/MAY/2021
     Route: 042
     Dates: start: 20210414

REACTIONS (1)
  - Disease progression [Unknown]
